FAERS Safety Report 8469281-1 (Version None)
Quarter: 2012Q2

REPORT INFORMATION
  Report Type: 
  Country: None (occurrence: None)
  Receive Date: 20120626
  Receipt Date: 20120618
  Transmission Date: 20120825
  Serious: Yes (Other)
  Sender: FDA-Public Use
  Company Number: KR-ELI_LILLY_AND_COMPANY-KR201206004774

PATIENT
  Sex: Female

DRUGS (3)
  1. FORTEO [Suspect]
     Indication: FRACTURE
     Dosage: 20 UG, QD
     Route: 058
     Dates: start: 20120501
  2. ANTIHYPERTENSIVES [Concomitant]
     Dosage: UNK, UNKNOWN
     Route: 065
  3. ANALGESICS [Concomitant]
     Dosage: UNK, UNKNOWN
     Route: 065

REACTIONS (9)
  - RASH [None]
  - WEIGHT INCREASED [None]
  - ASTHENIA [None]
  - OEDEMA PERIPHERAL [None]
  - OFF LABEL USE [None]
  - SWELLING FACE [None]
  - POLYURIA [None]
  - NAUSEA [None]
  - DIZZINESS [None]
